FAERS Safety Report 14526506 (Version 1)
Quarter: 2018Q1

REPORT INFORMATION
  Report Type: Spontaneous
  Country: US (occurrence: US)
  Receive Date: 20180213
  Receipt Date: 20180213
  Transmission Date: 20180509
  Serious: Yes (Other)
  Sender: FDA-Public Use
  Company Number: US-CELGENEUS-USA-20180107560

PATIENT
  Age: 59 Year
  Sex: Male
  Weight: 66.74 kg

DRUGS (7)
  1. ACYCLOVIR. [Concomitant]
     Active Substance: ACYCLOVIR
     Indication: HERPES ZOSTER
     Dosage: 200 MILLIGRAM
     Route: 048
     Dates: start: 201708
  2. POMALYST [Suspect]
     Active Substance: POMALIDOMIDE
     Indication: PLASMA CELL MYELOMA
     Dosage: 2 MILLIGRAM
     Route: 048
     Dates: start: 20171122
  3. ASPIRIN. [Concomitant]
     Active Substance: ASPIRIN
     Indication: COAGULOPATHY
     Dosage: 81 MILLIGRAM
     Route: 048
     Dates: start: 201708
  4. FLOMAX [Concomitant]
     Active Substance: TAMSULOSIN HYDROCHLORIDE
     Indication: URINARY RETENTION
     Dosage: .4 MILLIGRAM
     Route: 048
     Dates: start: 201712
  5. FLOMAX [Concomitant]
     Active Substance: TAMSULOSIN HYDROCHLORIDE
     Indication: PERIPHERAL SWELLING
  6. VITAMIN C [Concomitant]
     Active Substance: ASCORBIC ACID
     Indication: PRODUCT USED FOR UNKNOWN INDICATION
     Route: 065
  7. ENTECAVIR. [Concomitant]
     Active Substance: ENTECAVIR
     Indication: HEPATITIS
     Dosage: .5 MILLIGRAM
     Route: 048
     Dates: start: 201708

REACTIONS (3)
  - Constipation [Recovered/Resolved]
  - Renal failure [Unknown]
  - Abdominal pain upper [Recovered/Resolved with Sequelae]

NARRATIVE: CASE EVENT DATE: 201712
